FAERS Safety Report 23294353 (Version 1)
Quarter: 2023Q4

REPORT INFORMATION
  Report Type: Spontaneous
  Country: US (occurrence: None)
  Receive Date: 20231213
  Receipt Date: 20231213
  Transmission Date: 20240109
  Serious: Yes (Death)
  Sender: FDA-Public Use
  Company Number: None

PATIENT
  Age: 92 Year
  Sex: Female

DRUGS (1)
  1. ZARXIO [Suspect]
     Active Substance: FILGRASTIM-SNDZ
     Dosage: OTHER FREQUENCY : 3 TIMES;?
     Dates: start: 20230307, end: 20231213

REACTIONS (1)
  - Death [None]

NARRATIVE: CASE EVENT DATE: 20231213
